FAERS Safety Report 14829130 (Version 3)
Quarter: 2018Q2

REPORT INFORMATION
  Report Type: Spontaneous
  Country: BR (occurrence: BR)
  Receive Date: 20180430
  Receipt Date: 20180606
  Transmission Date: 20180711
  Serious: Yes (Other)
  Sender: FDA-Public Use
  Company Number: BR-PFIZER INC-2018162313

PATIENT
  Age: 43 Year
  Sex: Female

DRUGS (1)
  1. METHOTREXATE SODIUM. [Suspect]
     Active Substance: METHOTREXATE SODIUM
     Indication: RHEUMATOID ARTHRITIS
     Dosage: 15 MG, DAILY

REACTIONS (7)
  - Papule [Recovering/Resolving]
  - Stomatitis [Recovering/Resolving]
  - Epidermal necrosis [Recovering/Resolving]
  - Pancytopenia [Recovering/Resolving]
  - Accidental overdose [Recovering/Resolving]
  - Toxicity to various agents [Recovering/Resolving]
  - Hepatic function abnormal [Recovering/Resolving]
